FAERS Safety Report 6314929-0 (Version None)
Quarter: 2009Q3

REPORT INFORMATION
  Report Type: 
  Country: None (occurrence: None)
  Receive Date: 20090819
  Receipt Date: 20090812
  Transmission Date: 20100115
  Serious: Yes (Other)
  Sender: FDA-Public Use
  Company Number: A0801886A

PATIENT
  Age: 59 Year
  Sex: Male

DRUGS (5)
  1. WELLBUTRIN SR [Suspect]
     Route: 048
     Dates: start: 20010101
  2. BUPROPION HYDROCHLORIDE [Suspect]
     Dosage: 150MG TWICE PER DAY
     Route: 048
     Dates: start: 20050623, end: 20050601
  3. EFFEXOR [Suspect]
  4. BLOOD PRESSURE MEDICATION [Concomitant]
  5. LIPITOR [Concomitant]

REACTIONS (4)
  - ADVERSE DRUG REACTION [None]
  - DEPRESSED LEVEL OF CONSCIOUSNESS [None]
  - DRUG INTERACTION [None]
  - HEADACHE [None]
